FAERS Safety Report 9260527 (Version 1)
Quarter: 2013Q2

REPORT INFORMATION
  Report Type: Spontaneous
  Country: US (occurrence: US)
  Receive Date: 20130429
  Receipt Date: 20130429
  Transmission Date: 20140414
  Serious: Yes (Hospitalization, Other)
  Sender: FDA-Public Use
  Company Number: US-CELGENEUS-163-21880-13030391

PATIENT
  Sex: Female

DRUGS (2)
  1. REVLIMID [Suspect]
     Indication: 5Q MINUS SYNDROME
     Dosage: 5 MILLIGRAM
     Route: 048
     Dates: start: 20130124
  2. REVLIMID [Suspect]
     Dosage: 10 MILLIGRAM
     Route: 048
     Dates: start: 201302

REACTIONS (8)
  - Coma [Unknown]
  - Iron overload [Unknown]
  - Anaemia [Unknown]
  - Full blood count decreased [Unknown]
  - Blood potassium decreased [Unknown]
  - Rash [Unknown]
  - Fatigue [Unknown]
  - Dyspepsia [Recovered/Resolved]
